FAERS Safety Report 23061222 (Version 1)
Quarter: 2023Q4

REPORT INFORMATION
  Report Type: Other
  Country: US (occurrence: US)
  Receive Date: 20231013
  Receipt Date: 20231013
  Transmission Date: 20240109
  Serious: Yes (Hospitalization, Other)
  Sender: FDA-Public Use
  Company Number: US-ROCHE-2533044

PATIENT
  Age: 52 Year
  Sex: Female
  Weight: 90.8 kg

DRUGS (29)
  1. OCREVUS [Suspect]
     Active Substance: OCRELIZUMAB
     Indication: Relapsing multiple sclerosis
     Route: 042
     Dates: start: 201706
  2. OCREVUS [Suspect]
     Active Substance: OCRELIZUMAB
     Route: 065
     Dates: start: 20190723
  3. OCREVUS [Suspect]
     Active Substance: OCRELIZUMAB
     Route: 065
     Dates: start: 20190121
  4. OCREVUS [Suspect]
     Active Substance: OCRELIZUMAB
     Dosage: ANTICIPATE DATE OF TREATMENT: /FEB/2021
     Route: 042
  5. NUVIGIL [Concomitant]
     Active Substance: ARMODAFINIL
     Indication: Fatigue
     Dosage: 150 MG ONCE DAILY AS NEEDED ;ONGOING: YES
  6. BACLOFEN [Concomitant]
     Active Substance: BACLOFEN
     Indication: Muscle spasms
     Dosage: UP TO FOUR TIMES IN ONE DAY ;ONGOING: YES
  7. SKELAXIN [Concomitant]
     Active Substance: METAXALONE
     Indication: Muscle spasms
     Dosage: UP TO TWO TIMES DAILY PRN ;ONGOING: YES
  8. SYNTHROID [Concomitant]
     Active Substance: LEVOTHYROXINE SODIUM
     Dosage: ONGOING: YES
  9. NORTRIPTYLINE [Concomitant]
     Active Substance: NORTRIPTYLINE
     Dosage: ONGOING: YES
  10. KEPPRA [Concomitant]
     Active Substance: LEVETIRACETAM
     Indication: Seizure
     Dosage: ONGOING: YES
  11. CYMBALTA [Concomitant]
     Active Substance: DULOXETINE HYDROCHLORIDE
     Dosage: ONGOING: YES
  12. TOPAMAX [Concomitant]
     Active Substance: TOPIRAMATE
     Indication: Headache
     Dosage: ONGOING: YES
  13. ZICONOTIDE ACETATE [Concomitant]
     Active Substance: ZICONOTIDE ACETATE
     Dosage: ONGOING: YES
  14. BOTOX [Concomitant]
     Active Substance: ONABOTULINUMTOXINA
     Indication: Muscle spasms
     Dosage: ONGOING: YES
  15. VITAMIN B12 [Concomitant]
     Active Substance: CYANOCOBALAMIN
  16. METHYLPHENIDATE [Concomitant]
     Active Substance: METHYLPHENIDATE
  17. PREMARIN [Concomitant]
     Active Substance: ESTROGENS, CONJUGATED
  18. PRUCALOPRIDE [Concomitant]
     Active Substance: PRUCALOPRIDE
  19. TRULANCE [Concomitant]
     Active Substance: PLECANATIDE
  20. CHILDRENS TYLENOL [Concomitant]
     Active Substance: ACETAMINOPHEN
  21. LIPITOR [Concomitant]
     Active Substance: ATORVASTATIN CALCIUM
  22. BETAMETHASONE DIPROPIONATE [Concomitant]
     Active Substance: BETAMETHASONE DIPROPIONATE
  23. EPIPEN [Concomitant]
     Active Substance: EPINEPHRINE
  24. E-MYCIN [Concomitant]
     Active Substance: ERYTHROMYCIN
  25. ALA-CORT [Concomitant]
  26. NIZORAL [Concomitant]
     Active Substance: KETOCONAZOLE
  27. PHENERGAN [Concomitant]
     Active Substance: PROMETHAZINE HYDROCHLORIDE
  28. TOPAMAX [Concomitant]
     Active Substance: TOPIRAMATE
  29. ZICONOTIDE [Concomitant]
     Active Substance: ZICONOTIDE

REACTIONS (12)
  - Vomiting [Recovered/Resolved]
  - Pain [Recovering/Resolving]
  - Blood potassium decreased [Recovered/Resolved]
  - Blood magnesium decreased [Recovered/Resolved]
  - Fatigue [Not Recovered/Not Resolved]
  - Seizure [Recovered/Resolved]
  - Neuralgia [Not Recovered/Not Resolved]
  - Muscle spasms [Not Recovered/Not Resolved]
  - Disturbance in attention [Not Recovered/Not Resolved]
  - SARS-CoV-2 test positive [Not Recovered/Not Resolved]
  - Impaired gastric emptying [Not Recovered/Not Resolved]
  - Sinusitis [Recovered/Resolved]

NARRATIVE: CASE EVENT DATE: 20180101
